FAERS Safety Report 22884597 (Version 4)
Quarter: 2023Q4

REPORT INFORMATION
  Report Type: Spontaneous
  Country: US (occurrence: US)
  Receive Date: 20230830
  Receipt Date: 20231130
  Transmission Date: 20240110
  Serious: Yes (Hospitalization, Other)
  Sender: FDA-Public Use
  Company Number: US-BRISTOL-MYERS SQUIBB COMPANY-2023-117879

PATIENT
  Age: 64 Year
  Sex: Male

DRUGS (2)
  1. LENALIDOMIDE [Suspect]
     Active Substance: LENALIDOMIDE
     Indication: Chronic lymphocytic leukaemia
     Dosage: TAKE 1 CAPSULE BY MOUTH EVERY DAY FOR 21 DAYS ON THEN 7 DAYS OFF EVERY 28DAYS
     Route: 048
     Dates: start: 20230810
  2. LENALIDOMIDE [Suspect]
     Active Substance: LENALIDOMIDE
     Route: 048

REACTIONS (9)
  - Asthenia [Unknown]
  - Urethral obstruction [Unknown]
  - Weight decreased [Unknown]
  - Procedural pain [Unknown]
  - Peripheral swelling [Unknown]
  - Full blood count decreased [Unknown]
  - Somnolence [Unknown]
  - Off label use [Unknown]
  - Dysphonia [Unknown]
